FAERS Safety Report 8935652 (Version 1)
Quarter: 2012Q4

REPORT INFORMATION
  Report Type: 
  Country: IT (occurrence: IT)
  Receive Date: 20121130
  Receipt Date: 20121130
  Transmission Date: 20130627
  Serious: Yes (Death, Life-Threatening, Hospitalization, Other)
  Sender: FDA-Public Use
  Company Number: IT-MPIJNJ-2012-08195

PATIENT

DRUGS (9)
  1. VELCADE [Suspect]
     Indication: MULTIPLE MYELOMA
     Dosage: UNK
     Route: 065
     Dates: start: 20120719, end: 20121016
  2. MELPHALAN [Concomitant]
     Indication: MULTIPLE MYELOMA
     Dosage: UNK
     Dates: start: 20120719, end: 20121016
  3. PREDNISONE [Concomitant]
     Indication: MULTIPLE MYELOMA
     Dosage: UNK
     Dates: start: 20120719, end: 20121016
  4. ACICLOVIR [Concomitant]
     Dosage: UNK
     Dates: start: 20120605
  5. TAVANIC [Concomitant]
     Dosage: UNK
     Dates: start: 20120608
  6. DIFLUCAN [Concomitant]
     Dosage: UNK
     Dates: start: 20120705
  7. ZYLORIC                            /00003301/ [Concomitant]
     Dosage: UNK
     Dates: start: 20120719
  8. EPREX [Concomitant]
     Dosage: UNK
     Dates: start: 20120810
  9. FERROGRAD                          /00023506/ [Concomitant]
     Dosage: UNK
     Dates: start: 20120810

REACTIONS (5)
  - Acute leukaemia [Fatal]
  - Septic shock [Fatal]
  - Loss of consciousness [Unknown]
  - Hypoxia [Unknown]
  - Pyrexia [Unknown]
